FAERS Safety Report 6272094-2 (Version None)
Quarter: 2009Q3

REPORT INFORMATION
  Report Type: 
  Country: None (occurrence: None)
  Receive Date: 20090717
  Receipt Date: 20090708
  Transmission Date: 20100115
  Serious: Yes (Other)
  Sender: FDA-Public Use
  Company Number: B0581212A

PATIENT
  Sex: Male

DRUGS (15)
  1. FLUTIDE [Suspect]
     Indication: ASTHMA
     Dosage: 50MCG TWICE PER DAY
     Route: 055
     Dates: start: 20080701
  2. FLUNASE (JAPAN) [Suspect]
     Indication: NASAL CONGESTION
     Dosage: 50MCG PER DAY
     Route: 045
     Dates: start: 20060401
  3. ONON [Suspect]
     Indication: COUGH
     Dosage: 1G TWICE PER DAY
     Route: 048
     Dates: start: 20070604, end: 20090613
  4. ALESION [Suspect]
     Indication: COUGH
     Dosage: .7G PER DAY
     Route: 048
     Dates: start: 20060626, end: 20090613
  5. MEPTIN [Suspect]
     Indication: COUGH
     Dosage: 20MCG UNKNOWN
     Route: 055
     Dates: start: 20070604
  6. TRAMAZOLINE HYDROCHLORIDE [Suspect]
     Indication: NASAL CONGESTION
     Dosage: 2ML PER DAY
     Route: 045
     Dates: start: 20060401
  7. IPD [Concomitant]
     Indication: COUGH
     Dosage: 3.4G PER DAY
     Route: 048
     Dates: start: 20060626, end: 20070401
  8. THEO-DUR [Concomitant]
     Indication: COUGH
     Dosage: 1.4G PER DAY
     Route: 048
     Dates: start: 20060626, end: 20060901
  9. MUCOSAL [Concomitant]
     Dosage: 2.1G PER DAY
     Route: 048
     Dates: start: 20060626, end: 20061101
  10. MUCODYNE [Concomitant]
     Dosage: 3.6G PER DAY
     Route: 048
     Dates: start: 20060626, end: 20061101
  11. INTAL [Concomitant]
     Route: 045
     Dates: start: 20060901, end: 20070301
  12. HOKUNALIN [Concomitant]
     Route: 062
     Dates: start: 20060626, end: 20060901
  13. HIRUDOID [Concomitant]
     Route: 061
     Dates: start: 20060626
  14. KINDAVATE [Concomitant]
     Route: 061
     Dates: start: 20060626
  15. AZUNOL [Concomitant]
     Route: 061
     Dates: start: 20060626

REACTIONS (2)
  - TOOTH DISCOLOURATION [None]
  - TOOTH HYPOPLASIA [None]
